FAERS Safety Report 13273704 (Version 5)
Quarter: 2017Q2

REPORT INFORMATION
  Report Type: Report from Study
  Country: US (occurrence: US)
  Receive Date: 20170227
  Receipt Date: 20170407
  Transmission Date: 20170830
  Serious: Yes (Life-Threatening, Hospitalization, Other)
  Sender: FDA-Public Use
  Company Number: US-PFIZER INC-2017001437

PATIENT
  Age: 60 Year
  Sex: Female

DRUGS (44)
  1. IBRANCE [Suspect]
     Active Substance: PALBOCICLIB
     Dosage: 125 MG, CYCLIC (QD 1-21 ON 28 DAY CYCLE)
     Route: 048
     Dates: start: 201612, end: 20170221
  2. LACTULOSE. [Concomitant]
     Active Substance: LACTULOSE
     Dosage: 10 GRAM/15 ML SOLUTION, 30 ML EVERY 2 HOURS UNTIL RESULTS OR A MAX OF 3 DOSES
     Route: 048
  3. OMEPRAZOLE. [Concomitant]
     Active Substance: OMEPRAZOLE
     Dosage: 20 MG, UNK
     Route: 048
     Dates: start: 20170124
  4. CYMBALTA [Concomitant]
     Active Substance: DULOXETINE HYDROCHLORIDE
     Dosage: 60 MG, DAILY (EVERY DAY)
     Route: 048
  5. RANITIDINE. [Concomitant]
     Active Substance: RANITIDINE
     Dosage: UNK
     Route: 048
  6. ABRAXANE [Concomitant]
     Active Substance: PACLITAXEL
     Indication: BREAST CANCER FEMALE
     Dosage: 190 MG, CYCLIC (D1,8,15 Q28 D CYCLE)
     Dates: start: 20170228
  7. FEMARA [Concomitant]
     Active Substance: LETROZOLE
     Dosage: 2.5 MG, 1X/DAY (EVERY DAY)
     Route: 048
  8. POLY-IRON FORTE [Concomitant]
     Dosage: 1 DF EVERY DAY, [CYANOCOBALAMIN-25 MCG]/[FOLIC ACID-1 MG]/[POLYSACCHARIDE-IRON COMPLEX-150MG]
     Route: 048
  9. FENTANYL. [Concomitant]
     Active Substance: FENTANYL
     Dosage: 75 UG/HR
     Route: 062
  10. PRAVASTATIN SODIUM. [Concomitant]
     Active Substance: PRAVASTATIN SODIUM
     Dosage: 20 MG, 1X/DAY (AT BEDTIME)
     Route: 048
  11. VITAMIN B6 [Concomitant]
     Active Substance: PYRIDOXINE HYDROCHLORIDE
     Dosage: 100 MG, DAILY
     Route: 048
  12. VITAMIN D3 [Concomitant]
     Active Substance: CHOLECALCIFEROL
     Dosage: 1000 IU, 1X/DAY
     Route: 048
  13. VITAMIN E [Concomitant]
     Active Substance: .ALPHA.-TOCOPHEROL
     Dosage: 400 IU, 1X/DAY
     Route: 048
  14. ZOMETA [Concomitant]
     Active Substance: ZOLEDRONIC ACID
     Dosage: 4 MG, UNK
     Route: 042
     Dates: start: 20170221
  15. EPOETIN ALFA [Concomitant]
     Active Substance: ERYTHROPOIETIN
     Dosage: UNK (40000)
     Dates: start: 20170207
  16. EPOETIN ALFA [Concomitant]
     Active Substance: ERYTHROPOIETIN
     Dosage: UNK (40000)
     Dates: start: 20170214
  17. LEUKINE [Concomitant]
     Active Substance: SARGRAMOSTIM
     Dosage: 500 UG, CYCLIC (CYCLE DAY 1)
     Route: 058
     Dates: start: 20170209
  18. LEUKINE [Concomitant]
     Active Substance: SARGRAMOSTIM
     Dosage: 500 UG, CYCLIC (CYCLE DAY 1)
     Route: 058
     Dates: start: 20170216
  19. ZOMETA [Concomitant]
     Active Substance: ZOLEDRONIC ACID
     Indication: BONE CANCER METASTATIC
     Dosage: UNK, CYCLIC (Q28D)
     Dates: start: 20150416
  20. EPOETIN ALFA [Concomitant]
     Active Substance: ERYTHROPOIETIN
     Dosage: 4000 IU, CYCLIC (DAY1 EVERY 7 DAYS)
     Route: 058
     Dates: start: 20170228
  21. LEUKINE [Concomitant]
     Active Substance: SARGRAMOSTIM
     Dosage: 500 UG, CYCLIC (CYCLE DAY 1)
     Route: 058
     Dates: start: 20170217
  22. ACETAMINOPHEN. [Concomitant]
     Active Substance: ACETAMINOPHEN
     Dosage: 500 MG, UNK
     Route: 048
     Dates: start: 20170209
  23. OMEPRAZOLE. [Concomitant]
     Active Substance: OMEPRAZOLE
     Dosage: 20 MG, 2X/DAY
     Route: 048
  24. OMEPRAZOLE. [Concomitant]
     Active Substance: OMEPRAZOLE
     Dosage: 20 MG, UNK
     Route: 048
     Dates: start: 20170125
  25. IBRANCE [Suspect]
     Active Substance: PALBOCICLIB
     Dosage: UNK
     Route: 048
     Dates: start: 20170210, end: 201702
  26. IBRANCE [Suspect]
     Active Substance: PALBOCICLIB
     Dosage: 125 MG, CYCLIC (DAY ON 1-21 ON A 28 DAY CYCLE)
     Route: 048
     Dates: start: 201702, end: 20170221
  27. LIOTHYRONINE [Concomitant]
     Active Substance: LIOTHYRONINE
     Dosage: 10 UG, 2X/DAY (2 IN THE EVENING AND 2 AT BEDTIME)
     Route: 048
  28. OXYCODONE [Concomitant]
     Active Substance: OXYCODONE
     Indication: PAIN
     Dosage: 5 MG, AS NEEDED (1 TABLET EVERY 4-6 HOURS PRN)
     Route: 048
  29. ALOXI [Concomitant]
     Active Substance: PALONOSETRON HYDROCHLORIDE
     Dosage: 250 UG, (0.25 MG/5 ML SOLUTION, 30 MINUTES PRIOR TO START OF CHEMOTHERAPY OVER 30 SECS)
     Route: 042
     Dates: start: 20170221
  30. POLYETHYLENE GLYCOL [Concomitant]
     Active Substance: POLYETHYLENE GLYCOLS
     Dosage: UNK (17 GRAM/DOSE POWDER)
  31. GABAPENTIN. [Concomitant]
     Active Substance: GABAPENTIN
     Dosage: 1000 MG, DAILY (3 CAPS AT NOON- AND 4 CAPS IN THE EVENING)
     Route: 048
  32. LEVOTHYROXINE. [Concomitant]
     Active Substance: LEVOTHYROXINE
     Dosage: 88 UG, 1X/DAY
     Route: 048
  33. EPOETIN ALFA [Concomitant]
     Active Substance: ERYTHROPOIETIN
     Dosage: 4000 IU, CYCLIC (DAY1 EVERY 7 DAYS)
     Route: 058
     Dates: start: 20170124
  34. EPOETIN ALFA [Concomitant]
     Active Substance: ERYTHROPOIETIN
     Dosage: 4000 IU, CYCLIC (DAY1 EVERY 7 DAYS)
     Route: 058
     Dates: start: 20170207
  35. EPOETIN ALFA [Concomitant]
     Active Substance: ERYTHROPOIETIN
     Dosage: 4000 IU, CYCLIC (DAY1 EVERY 7 DAYS)
     Route: 058
     Dates: start: 20170214
  36. LETROZOLE. [Concomitant]
     Active Substance: LETROZOLE
     Indication: BREAST CANCER
     Dosage: 2.5 MG, 1X/DAY
     Dates: start: 20161108, end: 20170321
  37. IBRANCE [Suspect]
     Active Substance: PALBOCICLIB
     Indication: BREAST CANCER METASTATIC
     Dosage: 125 MG, CYCLIC (DAILY ON DAYS 1 THROUGH 21 OF A 28-DAY TREATMENT CYCLE)
     Route: 048
     Dates: start: 20161128, end: 20170207
  38. CALTRATE 600+D [Concomitant]
     Dosage: 1 DF, 2X/DAY, [CALCIUM CARBONATE-600MG]/[CHOLECALCIFEROL-(1,500 MG)-800 UNIT] (TAKE WITH TUMS)
     Route: 048
  39. FENTANYL. [Concomitant]
     Active Substance: FENTANYL
     Dosage: 50 UG/HR
     Route: 062
  40. DULCOLAX NOS [Concomitant]
     Active Substance: BISACODYL OR DOCUSATE SODIUM
     Dosage: WITH FIRST DOSE OF LACTULOSE
  41. MIRALAX [Concomitant]
     Active Substance: POLYETHYLENE GLYCOL 3350
     Dosage: 17 G DAILY (17 GRAM/DOSE POWDER)
     Route: 048
  42. RELPAX [Concomitant]
     Active Substance: ELETRIPTAN HYDROBROMIDE
     Dosage: 40 MG, AS NEEDED (PRN)
     Route: 048
  43. TUMS [Concomitant]
     Active Substance: CALCIUM CARBONATE
     Dosage: 1 DF 2X/DAY, (200 MG CALCIUM (500 MG) TABLET 1 TABLET TWICE A DAY WITH CALTRATE)
     Route: 048
  44. ALOXI [Concomitant]
     Active Substance: PALONOSETRON HYDROCHLORIDE
     Dosage: 250 UG, (0.25 MG/5 ML SOLUTION, 30 MINUTES PRIOR TO START OF CHEMOTHERAPY OVER 30 SECS)
     Route: 042
     Dates: start: 20170228

REACTIONS (15)
  - Platelet count decreased [Unknown]
  - Anaemia [Recovering/Resolving]
  - Back pain [Recovered/Resolved]
  - Neutrophil count decreased [Recovering/Resolving]
  - Dyspnoea exertional [Unknown]
  - Feeling abnormal [Unknown]
  - Palpitations [Unknown]
  - Fatigue [Not Recovered/Not Resolved]
  - Pyrexia [Unknown]
  - Decreased appetite [Not Recovered/Not Resolved]
  - Nausea [Unknown]
  - Leukopenia [Recovering/Resolving]
  - Asthenia [Unknown]
  - Abnormal dreams [Unknown]
  - Neoplasm progression [Unknown]

NARRATIVE: CASE EVENT DATE: 2016
